FAERS Safety Report 25447615 (Version 1)
Quarter: 2025Q2

REPORT INFORMATION
  Report Type: Spontaneous
  Country: US (occurrence: US)
  Receive Date: 20250617
  Receipt Date: 20250617
  Transmission Date: 20250717
  Serious: No
  Sender: SANOFI AVENTIS
  Company Number: US-SA-2025SA170820

PATIENT
  Age: 10 Year
  Sex: Male

DRUGS (10)
  1. DUPIXENT [Suspect]
     Active Substance: DUPILUMAB
     Indication: Eosinophilic oesophagitis
     Route: 058
     Dates: start: 20240801
  2. Brom/pse/dm [Concomitant]
  3. BUDESONIDE [Concomitant]
     Active Substance: BUDESONIDE
  4. FERROUS SULFATE [Concomitant]
     Active Substance: FERROUS SULFATE
  5. ONDANSETRON [Concomitant]
     Active Substance: ONDANSETRON
  6. OSELTAMIVIR [Concomitant]
     Active Substance: OSELTAMIVIR
  7. RIZATRIPTAN [Concomitant]
     Active Substance: RIZATRIPTAN
  8. TRAZODONE HCL [Concomitant]
     Active Substance: TRAZODONE HYDROCHLORIDE
  9. VALTOCO [Concomitant]
     Active Substance: DIAZEPAM
  10. ZONISAMIDE [Concomitant]
     Active Substance: ZONISAMIDE

REACTIONS (3)
  - Ear infection [Unknown]
  - Dysphagia [Unknown]
  - Impaired quality of life [Unknown]
